FAERS Safety Report 24715836 (Version 1)
Quarter: 2024Q4

REPORT INFORMATION
  Report Type: Spontaneous
  Country: CZ (occurrence: CZ)
  Receive Date: 20241210
  Receipt Date: 20241210
  Transmission Date: 20250115
  Serious: Yes (Other)
  Sender: SANDOZ
  Company Number: CZ-ABBVIE-6025838

PATIENT
  Age: 50 Year
  Sex: Male

DRUGS (5)
  1. ADALIMUMAB [Suspect]
     Active Substance: ADALIMUMAB
     Indication: Crohn^s disease
     Dosage: UNK,
     Route: 058
     Dates: start: 201207, end: 201901
  2. AZATHIOPRINE [Concomitant]
     Active Substance: AZATHIOPRINE
     Indication: Product used for unknown indication
     Dosage: 200.000MG
     Route: 065
     Dates: start: 201206, end: 201301
  3. AZATHIOPRINE [Concomitant]
     Active Substance: AZATHIOPRINE
     Dosage: UNK
     Route: 065
     Dates: start: 200710, end: 2009
  4. BUDESONIDE [Concomitant]
     Active Substance: BUDESONIDE
     Indication: Product used for unknown indication
     Dosage: UNK
     Route: 065
     Dates: start: 201206
  5. BUDESONIDE [Concomitant]
     Active Substance: BUDESONIDE
     Dosage: UNK,
     Route: 065
     Dates: start: 201301

REACTIONS (8)
  - Tongue neoplasm malignant stage unspecified [Recovered/Resolved]
  - Ulcer [Unknown]
  - Stenosis [Unknown]
  - Ileocaecal resection [Unknown]
  - Anastomotic stenosis [Unknown]
  - Drug specific antibody present [Unknown]
  - Drug level decreased [Unknown]
  - Drug ineffective [Unknown]

NARRATIVE: CASE EVENT DATE: 20120701
